FAERS Safety Report 9839860 (Version 2)
Quarter: 2014Q1

REPORT INFORMATION
  Report Type: Report from Study
  Country: NL (occurrence: NL)
  Receive Date: 20140124
  Receipt Date: 20140210
  Transmission Date: 20141002
  Serious: Yes (Hospitalization)
  Sender: FDA-Public Use
  Company Number: PHHY2013NL155246

PATIENT
  Age: 60 Year
  Sex: Female

DRUGS (5)
  1. ZOMETA [Suspect]
     Indication: METASTASES TO BONE
     Dosage: 4 MG / 100 ML ONCE PER 4 WEEKS
     Route: 042
     Dates: start: 201310
  2. ZOMETA [Suspect]
     Dosage: 4 MG / 100 ML ONCE PER 4 WEEKS
     Route: 042
     Dates: start: 20131021
  3. ZOMETA [Suspect]
     Dosage: 4 MG / 100 ML ONCE PER 4 WEEKS
     Route: 042
     Dates: start: 20131218
  4. ZOMETA [Suspect]
     Dosage: 4 MG / 100 ML ONCE PER 4 WEEKS
     Dates: start: 20131223
  5. XELODA [Concomitant]
     Dosage: UNK UKN, UNK

REACTIONS (2)
  - Bone pain [Not Recovered/Not Resolved]
  - Blood count abnormal [Unknown]
